FAERS Safety Report 14753124 (Version 1)
Quarter: 2018Q2

REPORT INFORMATION
  Report Type: Report from Study
  Country: US (occurrence: US)
  Receive Date: 20180412
  Receipt Date: 20180412
  Transmission Date: 20180711
  Serious: Yes (Other)
  Sender: FDA-Public Use
  Company Number: US-JNJFOC-20180410102

PATIENT
  Sex: Male

DRUGS (15)
  1. CLINDAGEL [Concomitant]
     Active Substance: CLINDAMYCIN PHOSPHATE
  2. LORATADINE. [Concomitant]
     Active Substance: LORATADINE
  3. METOPROLOL SUCCINATE. [Concomitant]
     Active Substance: METOPROLOL SUCCINATE
  4. LATANOPROST. [Concomitant]
     Active Substance: LATANOPROST
  5. PRAVASTATIN. [Concomitant]
     Active Substance: PRAVASTATIN
  6. TERAZOSIN [Concomitant]
     Active Substance: TERAZOSIN\TERAZOSIN HYDROCHLORIDE
  7. IMBRUVICA [Suspect]
     Active Substance: IBRUTINIB
     Indication: CHRONIC LYMPHOCYTIC LEUKAEMIA
     Route: 048
     Dates: start: 20180328
  8. PROCHLORPERAZINE MALEATE. [Concomitant]
     Active Substance: PROCHLORPERAZINE MALEATE
  9. CEFUROXIME. [Concomitant]
     Active Substance: CEFUROXIME
  10. LEVOTHYROXIN [Concomitant]
     Active Substance: LEVOTHYROXINE
  11. TRAMADOL. [Concomitant]
     Active Substance: TRAMADOL
  12. HYDROCORTISONE. [Concomitant]
     Active Substance: HYDROCORTISONE
  13. GLIMEPIRIDE. [Concomitant]
     Active Substance: GLIMEPIRIDE
  14. VITAMIN A AND D [Concomitant]
     Active Substance: LANOLIN\PETROLATUM
  15. DOXYCYCLINE HYCLATE. [Concomitant]
     Active Substance: DOXYCYCLINE HYCLATE

REACTIONS (2)
  - Sinus node dysfunction [Unknown]
  - Atrial fibrillation [Unknown]
